FAERS Safety Report 18847590 (Version 1)
Quarter: 2021Q1

REPORT INFORMATION
  Report Type: Spontaneous
  Country: US (occurrence: US)
  Receive Date: 20210204
  Receipt Date: 20210204
  Transmission Date: 20210419
  Serious: Yes (Hospitalization, Other)
  Sender: FDA-Public Use
  Company Number: US-BAYER-2021-042804

PATIENT
  Age: 47 Year
  Sex: Female

DRUGS (1)
  1. YASMIN [Suspect]
     Active Substance: DROSPIRENONE\ETHINYL ESTRADIOL
     Indication: CONTRACEPTION
     Dosage: UNK
     Route: 048
     Dates: start: 2017

REACTIONS (3)
  - Anaphylactic reaction [Recovered/Resolved]
  - Metrorrhagia [None]
  - Urticaria [None]

NARRATIVE: CASE EVENT DATE: 201903
